FAERS Safety Report 6388408-9 (Version None)
Quarter: 2009Q4

REPORT INFORMATION
  Report Type: 
  Country: None (occurrence: None)
  Receive Date: 20091001
  Receipt Date: 20091001
  Transmission Date: 20100525
  Serious: Yes (Hospitalization)
  Sender: FDA-Public Use
  Company Number: None

PATIENT
  Age: 71 Year
  Sex: Male

DRUGS (2)
  1. DIGOXIN [Suspect]
     Indication: CARDIAC FAILURE CONGESTIVE
     Dosage: 0.125 MG EVERY DAY PO
     Route: 048
     Dates: start: 20070825, end: 20090930
  2. DILTIAZEM [Suspect]
     Indication: HYPERTENSION
     Dosage: 120 MG EVERY DAY PO
     Route: 048
     Dates: start: 20070829, end: 20090930

REACTIONS (1)
  - BRADYCARDIA [None]
